FAERS Safety Report 5731019-6 (Version None)
Quarter: 2008Q2

REPORT INFORMATION
  Report Type: 
  Country: None (occurrence: None)
  Receive Date: 20080505
  Receipt Date: 20080428
  Transmission Date: 20081010
  Serious: Yes (Other)
  Sender: FDA-Public Use
  Company Number: 163-20785-08041908

PATIENT
  Age: 49 Year
  Sex: Female

DRUGS (2)
  1. THALOMID [Suspect]
     Indication: MULTIPLE MYELOMA
     Dosage: 200MG - 100MG, DAILY, ORAL; EVERY OTHER DAY, ORAL
     Route: 048
     Dates: start: 20041208, end: 20050301
  2. THALOMID [Suspect]
     Indication: MULTIPLE MYELOMA
     Dosage: 200MG - 100MG, DAILY, ORAL; EVERY OTHER DAY, ORAL
     Route: 048
     Dates: start: 20060210, end: 20080427

REACTIONS (2)
  - BLOOD HUMAN CHORIONIC GONADOTROPIN INCREASED [None]
  - PREGNANCY TEST URINE POSITIVE [None]
